FAERS Safety Report 4944992-0 (Version None)
Quarter: 2006Q1

REPORT INFORMATION
  Report Type: 
  Country: None (occurrence: None)
  Receive Date: 20060117
  Receipt Date: 20050516
  Transmission Date: 20060701
  Serious: Yes (Hospitalization)
  Sender: FDA-Public Use
  Company Number: A03200501464

PATIENT
  Age: 70 Year
  Sex: Female
  Weight: 56.8811 kg

DRUGS (10)
  1. PLAVIX [Suspect]
     Dosage: ORAL
     Route: 048
  2. ASPIRIN [Suspect]
     Dosage: 325 MG QD - ORAL
     Route: 048
     Dates: end: 20050414
  3. EPTIFIBATIDE - SOLUTION [Suspect]
     Indication: CORONARY ANGIOPLASTY
     Dosage: 2 BOLUS' OF 5 ML FOLLOWED BY 9 ML/HR CONTINUOUS INFUSION FOR 18 HRS. - INTRAVENOUS BOLUS
     Route: 040
     Dates: start: 20040412, end: 20040401
  4. EPTIFIBATIDE - SOLUTION [Suspect]
     Indication: STENT PLACEMENT
     Dosage: 2 BOLUS' OF 5 ML FOLLOWED BY 9 ML/HR CONTINUOUS INFUSION FOR 18 HRS. - INTRAVENOUS BOLUS
     Route: 040
     Dates: start: 20040412, end: 20040401
  5. HEPARIN [Suspect]
     Indication: MYOCARDIAL INFARCTION
     Dosage: 2.5 ML BOLUS FOLLOWED BY A 1 ML BOLUS DOSE - INTRAVENOUS BOLUS
     Route: 040
     Dates: start: 20040412, end: 20040412
  6. NAPROXEN [Suspect]
     Indication: SHOULDER PAIN
     Dosage: 250 MG BID - ORAL
     Route: 048
     Dates: end: 20040414
  7. ATENOLOL [Concomitant]
  8. INSULIN [Concomitant]
  9. RAMIPRIL [Concomitant]
  10. SIMVASTATIN [Concomitant]

REACTIONS (7)
  - ANAEMIA [None]
  - CHEST PAIN [None]
  - DYSPNOEA [None]
  - GASTRODUODENAL ULCER [None]
  - GASTROINTESTINAL HAEMORRHAGE [None]
  - HYPOTENSION [None]
  - SYNCOPE [None]
